FAERS Safety Report 18246101 (Version 1)
Quarter: 2020Q3

REPORT INFORMATION
  Report Type: Spontaneous
  Country: US (occurrence: US)
  Receive Date: 20200909
  Receipt Date: 20200909
  Transmission Date: 20201103
  Serious: Yes (Other)
  Sender: FDA-Public Use
  Company Number: US-STRIDES ARCOLAB LIMITED-2020SP010710

PATIENT
  Sex: Female
  Weight: 58 kg

DRUGS (2)
  1. HYDROCORTISONE. [Suspect]
     Active Substance: HYDROCORTISONE
     Indication: CORTISOL DECREASED
     Dosage: UNK (PFIZER^S PRODUCT)
     Route: 065
  2. HYDROCORTISONE. [Suspect]
     Active Substance: HYDROCORTISONE
     Dosage: 5 MILLIGRAM, 1 TO 1 1/2 TABLETS (VENSUN)
     Route: 048

REACTIONS (8)
  - Off label use [Unknown]
  - Somnolence [Not Recovered/Not Resolved]
  - Feeling abnormal [Not Recovered/Not Resolved]
  - Hypothalamo-pituitary disorder [Unknown]
  - Nervousness [Not Recovered/Not Resolved]
  - Insomnia [Unknown]
  - Paranoia [Not Recovered/Not Resolved]
  - Dissociation [Unknown]
